FAERS Safety Report 22309727 (Version 1)
Quarter: 2023Q2

REPORT INFORMATION
  Report Type: Spontaneous
  Country: FR (occurrence: FR)
  Receive Date: 20230511
  Receipt Date: 20230511
  Transmission Date: 20230721
  Serious: Yes (Other)
  Sender: FDA-Public Use
  Company Number: FR-SUN PHARMACEUTICAL INDUSTRIES LTD-2023R1-387824

PATIENT
  Age: 65 Year
  Sex: Male

DRUGS (8)
  1. AMPHOTERICIN B [Suspect]
     Active Substance: AMPHOTERICIN B
     Indication: Visceral leishmaniasis
     Dosage: 30 MILLIGRAM/KILOGRAM
     Route: 042
  2. DOLUTEGRAVIR [Suspect]
     Active Substance: DOLUTEGRAVIR
     Indication: Antiretroviral therapy
     Dosage: UNK
     Route: 065
  3. LAMIVUDINE [Suspect]
     Active Substance: LAMIVUDINE
     Indication: Antiretroviral therapy
     Dosage: UNK
     Route: 065
  4. AMPHOTERICIN B [Suspect]
     Active Substance: AMPHOTERICIN B
     Indication: Visceral leishmaniasis
     Dosage: UNK
  5. AMPHOTERICIN B [Suspect]
     Active Substance: AMPHOTERICIN B
     Indication: Visceral leishmaniasis
     Dosage: UNK
     Route: 047
  6. DEXAMETHASONE [Suspect]
     Active Substance: DEXAMETHASONE
     Indication: Visceral leishmaniasis
     Dosage: UNK
     Route: 047
  7. DORAVIRINE [Suspect]
     Active Substance: DORAVIRINE
     Indication: Antiretroviral therapy
     Dosage: UNK
     Route: 065
  8. MILTEFOSINE [Suspect]
     Active Substance: MILTEFOSINE
     Indication: Visceral leishmaniasis
     Dosage: 50 MILLIGRAM, BID
     Route: 065

REACTIONS (1)
  - Disease recurrence [Unknown]
